FAERS Safety Report 8055411-2 (Version None)
Quarter: 2012Q1

REPORT INFORMATION
  Report Type: 
  Country: None (occurrence: None)
  Receive Date: 20120119
  Receipt Date: 20120118
  Transmission Date: 20120608
  Serious: Yes (Death, Hospitalization)
  Sender: FDA-Public Use
  Company Number: PHEH2012US001621

PATIENT
  Sex: Female

DRUGS (1)
  1. EXJADE [Suspect]
     Indication: ESSENTIAL THROMBOCYTHAEMIA
     Dosage: 1250 MG, DAILY
     Route: 048
     Dates: start: 20100519

REACTIONS (1)
  - DEATH [None]
